FAERS Safety Report 18086705 (Version 3)
Quarter: 2020Q3

REPORT INFORMATION
  Report Type: Spontaneous
  Country: US (occurrence: US)
  Receive Date: 20200729
  Receipt Date: 20200909
  Transmission Date: 20201103
  Serious: Yes (Other)
  Sender: FDA-Public Use
  Company Number: US-ROCHE-2648715

PATIENT
  Sex: Male
  Weight: 75.3 kg

DRUGS (8)
  1. PROSCAR [Concomitant]
     Active Substance: FINASTERIDE
     Indication: BENIGN PROSTATIC HYPERPLASIA
  2. OFEV [Suspect]
     Active Substance: NINTEDANIB
     Indication: TRANSAMINASES INCREASED
     Route: 048
     Dates: start: 20190207
  3. ALLOPURINOL. [Concomitant]
     Active Substance: ALLOPURINOL
     Indication: GOUT
  4. LEUPROLIDE [Concomitant]
     Active Substance: LEUPROLIDE
     Indication: PROSTATE CANCER
     Dates: start: 201903, end: 201903
  5. OMEPRAZOLE. [Concomitant]
     Active Substance: OMEPRAZOLE
     Indication: GASTROOESOPHAGEAL REFLUX DISEASE
  6. OFEV [Suspect]
     Active Substance: NINTEDANIB
     Route: 048
  7. ESBRIET [Suspect]
     Active Substance: PIRFENIDONE
     Indication: PRODUCT USED FOR UNKNOWN INDICATION
     Route: 065
     Dates: start: 201902, end: 201906
  8. SIMVASTATIN. [Concomitant]
     Active Substance: SIMVASTATIN
     Indication: BLOOD CHOLESTEROL INCREASED

REACTIONS (9)
  - Hot flush [Recovered/Resolved]
  - Diarrhoea [Not Recovered/Not Resolved]
  - Product use in unapproved indication [Unknown]
  - Abdominal discomfort [Recovered/Resolved]
  - Off label use [Unknown]
  - Transaminases increased [Recovered/Resolved]
  - Nausea [Recovered/Resolved]
  - Dyspnoea [Not Recovered/Not Resolved]
  - Productive cough [Not Recovered/Not Resolved]
